FAERS Safety Report 6918586-1 (Version None)
Quarter: 2010Q3

REPORT INFORMATION
  Report Type: 
  Country: None (occurrence: None)
  Receive Date: 20100811
  Receipt Date: 20100809
  Transmission Date: 20110219
  Serious: Yes (Death, Life-Threatening)
  Sender: FDA-Public Use
  Company Number: JP-BAYER-201013451BYL

PATIENT
  Age: 72 Year
  Sex: Male
  Weight: 49 kg

DRUGS (2)
  1. NEXAVAR [Suspect]
     Indication: HEPATIC NEOPLASM MALIGNANT
     Dosage: UNIT DOSE: 200 MG
     Route: 048
     Dates: start: 20100615, end: 20100625
  2. LIVACT [Concomitant]
     Indication: HEPATIC CIRRHOSIS
     Dosage: UNIT DOSE: 4.15 G
     Route: 048
     Dates: start: 20100609, end: 20100625

REACTIONS (2)
  - HEPATIC ENCEPHALOPATHY [None]
  - UPPER GASTROINTESTINAL HAEMORRHAGE [None]
